FAERS Safety Report 4409790-5 (Version None)
Quarter: 2004Q3

REPORT INFORMATION
  Report Type: 
  Country: None (occurrence: None)
  Receive Date: 20040723
  Receipt Date: 20040623
  Transmission Date: 20050211
  Serious: Yes (Other)
  Sender: FDA-Public Use
  Company Number: 207373

PATIENT
  Sex: Male

DRUGS (1)
  1. RAPTIVA [Suspect]
     Indication: PSORIASIS
     Dosage: SUBCUTANEOUS
     Route: 058

REACTIONS (3)
  - ANAPHYLACTIC REACTION [None]
  - DISEASE RECURRENCE [None]
  - PSORIASIS [None]
